FAERS Safety Report 10925223 (Version 1)
Quarter: 2015Q1

REPORT INFORMATION
  Report Type: Spontaneous
  Country: US (occurrence: None)
  Receive Date: 20150316
  Receipt Date: 20150316
  Transmission Date: 20150721
  Serious: Yes (Hospitalization)
  Sender: FDA-Public Use
  Company Number: None

PATIENT
  Age: 28 Year
  Sex: Female
  Weight: 61.69 kg

DRUGS (1)
  1. BELATACEPT [Suspect]
     Active Substance: BELATACEPT
     Indication: IMMUNOSUPPRESSANT DRUG THERAPY
     Route: 042
     Dates: start: 20141218

REACTIONS (9)
  - Leukopenia [None]
  - Headache [None]
  - Toxicity to various agents [None]
  - Blood creatinine increased [None]
  - Asthenia [None]
  - Eye infection toxoplasmal [None]
  - Alopecia [None]
  - Hypoaesthesia [None]
  - Ophthalmic herpes simplex [None]

NARRATIVE: CASE EVENT DATE: 20150124
